FAERS Safety Report 11965675 (Version 1)
Quarter: 2016Q1

REPORT INFORMATION
  Report Type: Spontaneous
  Country: US (occurrence: US)
  Receive Date: 20160127
  Receipt Date: 20160127
  Transmission Date: 20160526
  Serious: Yes (Hospitalization)
  Sender: FDA-Public Use
  Company Number: US-DRREDDYS-USA/USA/16/0064900

PATIENT
  Age: 24 Year
  Sex: Female

DRUGS (1)
  1. VALACYCLOVIR [Suspect]
     Active Substance: VALACYCLOVIR HYDROCHLORIDE
     Indication: GENITAL HERPES
     Route: 065

REACTIONS (6)
  - Blood pressure increased [Recovered/Resolved]
  - Posterior reversible encephalopathy syndrome [Recovered/Resolved]
  - Status epilepticus [Recovered/Resolved]
  - Toxicity to various agents [Recovered/Resolved]
  - Neurotoxicity [Recovered/Resolved]
  - Renal failure [Recovered/Resolved]
